FAERS Safety Report 4413369-9 (Version None)
Quarter: 2004Q3

REPORT INFORMATION
  Report Type: 
  Country: None (occurrence: None)
  Receive Date: 20040802
  Receipt Date: 20040729
  Transmission Date: 20050211
  Serious: Yes (Life-Threatening, Hospitalization)
  Sender: FDA-Public Use
  Company Number: PHRM2004FR02462

PATIENT
  Age: 69 Year
  Sex: Male
  Weight: 93 kg

DRUGS (1)
  1. VOLTAREN [Suspect]
     Indication: BACK PAIN
     Route: 048
     Dates: start: 20021220, end: 20030107

REACTIONS (12)
  - ANAEMIA [None]
  - BACK PAIN [None]
  - BLOOD CREATININE INCREASED [None]
  - GASTRIC ULCER [None]
  - HAEMATEMESIS [None]
  - HAEMOGLOBIN DECREASED [None]
  - HEPATORENAL SYNDROME [None]
  - MELAENA [None]
  - MENINGITIS [None]
  - OESOPHAGEAL VARICEAL LIGATION [None]
  - OESOPHAGEAL VARICES HAEMORRHAGE [None]
  - STATUS EPILEPTICUS [None]
